FAERS Safety Report 17188576 (Version 1)
Quarter: 2019Q4

REPORT INFORMATION
  Report Type: Other
  Country: US (occurrence: US)
  Receive Date: 20191222
  Receipt Date: 20191222
  Transmission Date: 20200122
  Serious: No
  Sender: FDA-Public Use
  Company Number: US-ACORDA-ACO_161936_2019

PATIENT
  Sex: Male
  Weight: 79.37 kg

DRUGS (3)
  1. CARBIDOPA/LEVODOPA [Concomitant]
     Active Substance: CARBIDOPA\LEVODOPA
     Indication: PRODUCT USED FOR UNKNOWN INDICATION
     Dosage: 1.5 TABLET, TID
     Route: 048
  2. INBRIJA [Suspect]
     Active Substance: LEVODOPA
     Indication: ON AND OFF PHENOMENON
     Dosage: 42 MILLIGRAM, PRN (INHALE CONTENTS OF 2 CAPSULES, NOT TO EXCEED 5 DOSES A DAY)
     Dates: start: 20191030
  3. INBRIJA [Suspect]
     Active Substance: LEVODOPA
     Indication: PARKINSON^S DISEASE

REACTIONS (5)
  - Choking [Unknown]
  - Drug ineffective [Unknown]
  - Device occlusion [Unknown]
  - Retching [Recovered/Resolved]
  - Cough [Recovered/Resolved]
